FAERS Safety Report 19295198 (Version 1)
Quarter: 2021Q2

REPORT INFORMATION
  Report Type: Spontaneous
  Country: GB (occurrence: GB)
  Receive Date: 20210524
  Receipt Date: 20210524
  Transmission Date: 20210717
  Serious: Yes (Other)
  Sender: FDA-Public Use
  Company Number: GB-TOLMAR, INC.-21GB027161

PATIENT
  Age: 72 Year
  Sex: Female

DRUGS (5)
  1. CIDOFOVIR. [Concomitant]
     Active Substance: CIDOFOVIR
     Indication: HERPES SIMPLEX
     Route: 051
  2. PROBENECID. [Concomitant]
     Active Substance: PROBENECID
     Indication: HERPES SIMPLEX
     Route: 048
  3. IMIQUIMOD. [Suspect]
     Active Substance: IMIQUIMOD
     Indication: HERPES SIMPLEX
     Route: 061
  4. FOSCARNET [Concomitant]
     Active Substance: FOSCARNET
     Indication: HERPES SIMPLEX
     Dosage: UNK, Q 8 HR
     Route: 042
  5. ACYCLOVIR. [Suspect]
     Active Substance: ACYCLOVIR
     Indication: HERPES SIMPLEX
     Route: 051

REACTIONS (2)
  - Drug intolerance [Not Recovered/Not Resolved]
  - Drug resistance [Not Recovered/Not Resolved]
